FAERS Safety Report 7288552-8 (Version None)
Quarter: 2011Q1

REPORT INFORMATION
  Report Type: 
  Country: None (occurrence: None)
  Receive Date: 20110211
  Receipt Date: 20110203
  Transmission Date: 20110831
  Serious: Yes (Other)
  Sender: FDA-Public Use
  Company Number: US-BAYER-2011-013297

PATIENT
  Sex: Female
  Weight: 97 kg

DRUGS (4)
  1. FUROSEMIDE [Concomitant]
     Dosage: UNK UNK, QD
     Route: 048
     Dates: start: 19930101
  2. ASPIRIN [Suspect]
     Dosage: 81 MG, QD
     Route: 048
     Dates: start: 20110129, end: 20110203
  3. VITAMIN B-12 [Concomitant]
     Dosage: UNK UNK, UNK
     Route: 048
     Dates: start: 20100101
  4. SPIRIVA [Concomitant]
     Dosage: UNK UNK, QD
     Route: 048

REACTIONS (5)
  - APHAGIA [None]
  - LIP SWELLING [None]
  - HYPERSENSITIVITY [None]
  - SWELLING FACE [None]
  - HEADACHE [None]
